FAERS Safety Report 7889927-6 (Version None)
Quarter: 2011Q4

REPORT INFORMATION
  Report Type: 
  Country: None (occurrence: None)
  Receive Date: 20111103
  Receipt Date: 20111027
  Transmission Date: 20120403
  Serious: Yes (Hospitalization)
  Sender: FDA-Public Use
  Company Number: CA-US-EMD SERONO, INC.-7092681

PATIENT
  Sex: Male

DRUGS (4)
  1. ROBAX PLATINUM [Concomitant]
  2. REBIF [Suspect]
     Indication: MULTIPLE SCLEROSIS
     Route: 058
     Dates: start: 20051214, end: 20060323
  3. TYLENOL-500 [Concomitant]
  4. REBIF [Suspect]
     Route: 058
     Dates: start: 20061027

REACTIONS (1)
  - TRANSIENT ISCHAEMIC ATTACK [None]
